FAERS Safety Report 21837258 (Version 4)
Quarter: 2023Q2

REPORT INFORMATION
  Report Type: Spontaneous
  Country: PT (occurrence: PT)
  Receive Date: 20230109
  Receipt Date: 20230605
  Transmission Date: 20230722
  Serious: Yes (Other)
  Sender: FDA-Public Use
  Company Number: PT-GT-20221440

PATIENT
  Age: 52 Year
  Sex: Male

DRUGS (12)
  1. EZETIMIBE [Suspect]
     Active Substance: EZETIMIBE
     Indication: Product used for unknown indication
     Dosage: 10 MILLIGRAM, QD
     Route: 065
     Dates: start: 202005
  2. ROSUVASTATIN [Suspect]
     Active Substance: ROSUVASTATIN
     Indication: Product used for unknown indication
     Dosage: 20 MILLIGRAM, QD
     Route: 065
     Dates: start: 202005, end: 202108
  3. ATORVASTATIN [Suspect]
     Active Substance: ATORVASTATIN
     Indication: Dyslipidaemia
     Dosage: 20 MILLIGRAM, QD
     Route: 065
     Dates: start: 202108
  4. ATORVASTATIN [Suspect]
     Active Substance: ATORVASTATIN
     Dosage: 20 MILLIGRAM, Q6H (QID)
     Route: 065
     Dates: start: 202108
  5. SIMVASTATIN [Suspect]
     Active Substance: SIMVASTATIN
     Indication: Dyslipidaemia
     Dosage: 20 MILLIGRAM, Q6H (QID)
     Route: 065
     Dates: start: 201910, end: 2020
  6. SIMVASTATIN [Suspect]
     Active Substance: SIMVASTATIN
     Dosage: 20 MILLIGRAM, QD
     Route: 065
     Dates: start: 201910, end: 202005
  7. ATORVASTATIN CALCIUM\EZETIMIBE [Suspect]
     Active Substance: ATORVASTATIN CALCIUM\EZETIMIBE
     Indication: Product used for unknown indication
     Dosage: 1 DOSAGE FORM, QD, 10/20MG, QD (ID)
     Route: 048
     Dates: start: 202108
  8. EZETIMIBE [Concomitant]
     Active Substance: EZETIMIBE
     Indication: Dyslipidaemia
     Dosage: 10 MILLIGRAM, QD
     Route: 065
     Dates: start: 202005
  9. EZETIMIBE [Concomitant]
     Active Substance: EZETIMIBE
     Dosage: 10 MILLIGRAM, Q6H (QID)
     Route: 065
     Dates: start: 202108
  10. DEFLAZACORT [Concomitant]
     Active Substance: DEFLAZACORT
     Indication: Product used for unknown indication
     Dosage: 3 MILLIGRAM, QOD
     Route: 065
     Dates: start: 202202
  11. NAPROXEN [Concomitant]
     Active Substance: NAPROXEN
     Indication: Product used for unknown indication
     Dosage: 500 MILLIGRAM, QOD
     Route: 065
     Dates: start: 202202
  12. PENTOXIFYLLINE [Concomitant]
     Active Substance: PENTOXIFYLLINE
     Indication: Product used for unknown indication
     Dosage: 400 MILLIGRAM, QOD
     Route: 065
     Dates: start: 202202

REACTIONS (18)
  - Dermatomyositis [Unknown]
  - Cyanosis [Unknown]
  - Skin lesion [Unknown]
  - Hepatic cytolysis [Not Recovered/Not Resolved]
  - Lymphopenia [Recovering/Resolving]
  - Heliotrope rash [Recovering/Resolving]
  - Synovitis [Recovering/Resolving]
  - Sclerodactylia [Recovering/Resolving]
  - Inflammation [Recovering/Resolving]
  - Paronychia [Recovering/Resolving]
  - Haemorrhage [Recovering/Resolving]
  - Polyarthritis [Recovering/Resolving]
  - Myositis [Recovering/Resolving]
  - Myalgia [Unknown]
  - Asthenia [Unknown]
  - Thrombocytopenia [Recovering/Resolving]
  - Arthralgia [Unknown]
  - Arthritis [Recovered/Resolved]

NARRATIVE: CASE EVENT DATE: 20210201
